FAERS Safety Report 19485162 (Version 4)
Quarter: 2021Q3

REPORT INFORMATION
  Report Type: Report from Study
  Country: CO (occurrence: CO)
  Receive Date: 20210702
  Receipt Date: 20210826
  Transmission Date: 20211014
  Serious: Yes (Death, Hospitalization)
  Sender: FDA-Public Use
  Company Number: NVSC2021CO141776

PATIENT
  Age: 53 Year
  Sex: Female
  Weight: 62 kg

DRUGS (1)
  1. COSENTYX [Suspect]
     Active Substance: SECUKINUMAB
     Indication: PSORIASIS
     Dosage: (STARTED 4 YEARS AGO) 300 MG, QMO
     Route: 058
     Dates: end: 202105

REACTIONS (6)
  - General physical health deterioration [Fatal]
  - Oxygen saturation decreased [Fatal]
  - COVID-19 [Fatal]
  - Respiratory arrest [Fatal]
  - Dyspnoea [Fatal]
  - Pneumonia [Fatal]

NARRATIVE: CASE EVENT DATE: 20210529
